FAERS Safety Report 7358209-3 (Version None)
Quarter: 2011Q1

REPORT INFORMATION
  Report Type: 
  Country: None (occurrence: None)
  Receive Date: 20110317
  Receipt Date: 20110310
  Transmission Date: 20110831
  Serious: Yes (Other)
  Sender: FDA-Public Use
  Company Number: US-ROCHE-756641

PATIENT
  Sex: Male

DRUGS (2)
  1. XELODA [Suspect]
     Route: 065
     Dates: start: 20100401
  2. GEMZAR [Concomitant]
     Route: 065

REACTIONS (2)
  - ASCITES [None]
  - ABDOMINAL DISCOMFORT [None]
